FAERS Safety Report 9989265 (Version 2)
Quarter: 2014Q3

REPORT INFORMATION
  Report Type: Spontaneous
  Country: US (occurrence: US)
  Receive Date: 20140310
  Receipt Date: 20140702
  Transmission Date: 20150326
  Serious: Yes (Hospitalization)
  Sender: FDA-Public Use
  Company Number: US-BAYER-2014-036279

PATIENT
  Age: 34 Year
  Sex: Female
  Weight: 80.73 kg

DRUGS (8)
  1. PROVERA [Concomitant]
     Active Substance: MEDROXYPROGESTERONE ACETATE
  2. YAZ [Suspect]
     Active Substance: DROSPIRENONE\ETHINYL ESTRADIOL
     Indication: CONTRACEPTION
     Dosage: UNK
     Dates: start: 200907, end: 201008
  3. NORCO [Concomitant]
     Active Substance: ACETAMINOPHEN\HYDROCODONE BITARTRATE
  4. ADVIL [Concomitant]
     Active Substance: IBUPROFEN
     Dosage: UNK UNK, PRN
  5. ZITHROMAX [Concomitant]
     Active Substance: AZITHROMYCIN DIHYDRATE
     Dosage: 250 MG, TAKE 2 AT ONCE THEN ONE FOR FOUR DAYS
  6. YAZ [Suspect]
     Active Substance: DROSPIRENONE\ETHINYL ESTRADIOL
     Indication: PREMENSTRUAL SYNDROME
  7. IRON [Concomitant]
     Active Substance: IRON
  8. YAZ [Suspect]
     Active Substance: DROSPIRENONE\ETHINYL ESTRADIOL
     Indication: ACNE

REACTIONS (11)
  - Abdominal pain [None]
  - Back pain [None]
  - Abasia [Recovered/Resolved]
  - General physical health deterioration [None]
  - Anxiety [None]
  - Chest pain [None]
  - Injury [None]
  - Pulmonary embolism [None]
  - Pain [None]
  - Emotional distress [None]
  - Dyspnoea [None]

NARRATIVE: CASE EVENT DATE: 201009
